FAERS Safety Report 5327541-7 (Version None)
Quarter: 2007Q2

REPORT INFORMATION
  Report Type: 
  Country: None (occurrence: None)
  Receive Date: 20070517
  Receipt Date: 20070131
  Transmission Date: 20071010
  Serious: Yes (Hospitalization)
  Sender: FDA-Public Use
  Company Number: US-JNJFOC-20070104345

PATIENT
  Age: 15 Year
  Sex: Female

DRUGS (4)
  1. TRAMADOL HCL [Suspect]
     Indication: INTENTIONAL DRUG MISUSE
     Route: 048
  2. ANTISPASMODICS [Suspect]
     Indication: INTENTIONAL DRUG MISUSE
     Route: 048
  3. CIMETIDINE HCL [Suspect]
     Indication: INTENTIONAL DRUG MISUSE
     Route: 048
  4. PENICILLIN [Suspect]
     Indication: INTENTIONAL DRUG MISUSE
     Route: 048

REACTIONS (5)
  - INTENTIONAL DRUG MISUSE [None]
  - LOSS OF CONSCIOUSNESS [None]
  - MULTIPLE DRUG OVERDOSE INTENTIONAL [None]
  - SUICIDAL BEHAVIOUR [None]
  - VOMITING [None]
